FAERS Safety Report 11592726 (Version 1)
Quarter: 2015Q4

REPORT INFORMATION
  Report Type: Spontaneous
  Country: US (occurrence: None)
  Receive Date: 20151002
  Receipt Date: 20151002
  Transmission Date: 20160304
  Serious: No
  Sender: FDA-Public Use
  Company Number: None

PATIENT
  Age: 23 Year
  Sex: Male

DRUGS (1)
  1. CIMZIA [Suspect]
     Active Substance: CERTOLIZUMAB PEGOL
     Indication: CROHN^S DISEASE
     Dosage: 400MG WEEK 0, WEEK 2, 4
     Route: 058

REACTIONS (8)
  - Chest discomfort [None]
  - Throat tightness [None]
  - Panic attack [None]
  - Dyspnoea [None]
  - Pharyngeal disorder [None]
  - Infection [None]
  - Feeling abnormal [None]
  - Pulmonary mass [None]

NARRATIVE: CASE EVENT DATE: 20150916
